FAERS Safety Report 6086616-8 (Version None)
Quarter: 2009Q1

REPORT INFORMATION
  Report Type: 
  Country: None (occurrence: None)
  Receive Date: 20090223
  Receipt Date: 20090209
  Transmission Date: 20090719
  Serious: Yes (Hospitalization)
  Sender: FDA-Public Use
  Company Number: GB-PFIZER INC-2009168283

PATIENT

DRUGS (6)
  1. METHYLPREDNISOLONE AND METHYLPREDNISOLONE ACETATE AND METHYLPREDNISOLO [Suspect]
     Indication: RENAL TRANSPLANT
     Route: 042
  2. CORTICOSTEROIDS [Suspect]
     Indication: RENAL TRANSPLANT
     Dosage: UNK
     Route: 048
  3. MYCOPHENOLATE MOFETIL [Suspect]
     Indication: RENAL TRANSPLANT
  4. PROGRAF [Suspect]
     Indication: RENAL TRANSPLANT
     Dosage: 0.1 MG/KG, 2X/DAY
  5. CO-TRIMOXAZOLE [Concomitant]
  6. FLUCONAZOLE [Concomitant]
     Indication: VULVOVAGINAL CANDIDIASIS

REACTIONS (1)
  - POLYOMAVIRUS-ASSOCIATED NEPHROPATHY [None]
